FAERS Safety Report 18562648 (Version 1)
Quarter: 2020Q4

REPORT INFORMATION
  Report Type: Spontaneous
  Country: US (occurrence: US)
  Receive Date: 20201130
  Receipt Date: 20201130
  Transmission Date: 20210114
  Serious: No
  Sender: FDA-Public Use
  Company Number: US-ROCHE-2609783

PATIENT
  Sex: Female

DRUGS (12)
  1. ALPRAZOLAM. [Concomitant]
     Active Substance: ALPRAZOLAM
  2. GLIPIZIDE. [Concomitant]
     Active Substance: GLIPIZIDE
  3. JANUVIA [Concomitant]
     Active Substance: SITAGLIPTIN PHOSPHATE
  4. RAMIPRIL. [Concomitant]
     Active Substance: RAMIPRIL
  5. LIPITOR [Concomitant]
     Active Substance: ATORVASTATIN CALCIUM
  6. CARVEDILOL. [Concomitant]
     Active Substance: CARVEDILOL
  7. COLCRYS [Concomitant]
     Active Substance: COLCHICINE
  8. POTASSIUM [Concomitant]
     Active Substance: POTASSIUM
  9. ASPIRIN. [Concomitant]
     Active Substance: ASPIRIN
  10. SULFACETAMIDE. [Concomitant]
     Active Substance: SULFACETAMIDE
  11. LUCENTIS [Suspect]
     Active Substance: RANIBIZUMAB
     Indication: DIABETIC EYE DISEASE
     Route: 050
  12. AMOXICILLIN. [Concomitant]
     Active Substance: AMOXICILLIN

REACTIONS (1)
  - Eye pain [Not Recovered/Not Resolved]
